FAERS Safety Report 8620174-6 (Version None)
Quarter: 2012Q3

REPORT INFORMATION
  Report Type: 
  Country: None (occurrence: None)
  Receive Date: 20120824
  Receipt Date: 20120823
  Transmission Date: 20120928
  Serious: No
  Sender: FDA-Public Use
  Company Number: US-BAYER-2012-087343

PATIENT
  Age: 70 Year
  Sex: Female
  Weight: 59.41 kg

DRUGS (10)
  1. DOCUSATE SODIUM [Concomitant]
     Dosage: 100 MG, UNK
  2. BACLOFEN [Concomitant]
     Dosage: 10 MG, UNK
  3. KLOR-CON [Concomitant]
     Dosage: 10 MEQ ER
  4. IBUPROFEN [Concomitant]
     Dosage: 200 MG, UNK
  5. CRANBERRY [Concomitant]
  6. BETASERON [Suspect]
     Dosage: 1 ML, QOD
     Route: 058
  7. OMEPRAZOLE [Concomitant]
     Dosage: 10 MG, UNK
  8. AMANTADINE HCL [Concomitant]
     Dosage: 100 MG, UNK
  9. VITAMIN D [Concomitant]
     Dosage: 1000 IU, UNK
  10. DETROL [Concomitant]
     Dosage: 1 MG, UNK

REACTIONS (1)
  - GAIT DISTURBANCE [None]
